FAERS Safety Report 14832021 (Version 7)
Quarter: 2019Q2

REPORT INFORMATION
  Report Type: Report from Study
  Country: DE (occurrence: DE)
  Receive Date: 20180501
  Receipt Date: 20190502
  Transmission Date: 20190711
  Serious: Yes (Life-Threatening, Hospitalization, Other)
  Sender: FDA-Public Use
  Company Number: DE-INCYTE CORPORATION-2016IN005373

PATIENT

DRUGS (15)
  1. LEVODOPA [Concomitant]
     Active Substance: LEVODOPA
     Indication: PARKINSON^S DISEASE
     Dosage: 100/25 MG, UNK (1-1-1-1)
     Route: 048
     Dates: start: 20170601
  2. JAKAVI [Suspect]
     Active Substance: RUXOLITINIB
     Indication: POLYCYTHAEMIA VERA
     Dosage: 10 MG, BID
     Route: 048
     Dates: start: 20160711, end: 20160731
  3. JAKAVI [Suspect]
     Active Substance: RUXOLITINIB
     Dosage: 5 MG, QD
     Route: 048
     Dates: start: 20180807, end: 20181217
  4. FALITHROM [Concomitant]
     Active Substance: PHENPROCOUMON
     Indication: THROMBOSIS
     Dosage: DOSING ACCORDING TO INR VALUE
     Route: 048
     Dates: start: 2013, end: 20161103
  5. JAKAVI [Suspect]
     Active Substance: RUXOLITINIB
     Dosage: 5 MG, BID
     Route: 048
     Dates: start: 20161103, end: 20161219
  6. PRAMIPEXOL [Concomitant]
     Active Substance: PRAMIPEXOLE
     Indication: PARKINSON^S DISEASE
     Dosage: 2X1/2
     Route: 048
  7. ALLOPURINOL. [Concomitant]
     Active Substance: ALLOPURINOL
     Indication: BLOOD URIC ACID INCREASED
     Dosage: 100 MG, QD
     Route: 048
  8. FERRO-SANOL DUODENAL [Concomitant]
     Active Substance: FERROUS GLYCINE SULFATE
     Indication: ANAEMIA
     Dosage: 100 MG, QD
     Route: 048
     Dates: start: 20171222, end: 20180214
  9. JAKAVI [Suspect]
     Active Substance: RUXOLITINIB
     Dosage: 10 MG, QD
     Route: 048
     Dates: start: 20160801, end: 20160801
  10. EMSELEX [Concomitant]
     Active Substance: DARIFENACIN HYDROBROMIDE
     Indication: BLADDER DISORDER
     Dosage: 7.5 MG, QD
     Route: 048
  11. JAKAVI [Suspect]
     Active Substance: RUXOLITINIB
     Dosage: 5 MG, QD
     Route: 048
     Dates: start: 20161220, end: 20180402
  12. PANTOPRAZOL [Concomitant]
     Active Substance: PANTOPRAZOLE SODIUM
     Indication: GASTRITIS
     Dosage: 40 OT, UNK
     Route: 048
     Dates: start: 20160708
  13. JAKAVI [Suspect]
     Active Substance: RUXOLITINIB
     Dosage: 5 MG, QD
     Route: 048
     Dates: start: 20160815, end: 20161102
  14. JAKAVI [Suspect]
     Active Substance: RUXOLITINIB
     Dosage: 5 MG, QD
     Route: 048
     Dates: start: 20180423, end: 20180716
  15. JAKAVI [Suspect]
     Active Substance: RUXOLITINIB
     Dosage: 5 MG, QD
     Route: 048
     Dates: start: 20181223, end: 20190213

REACTIONS (13)
  - Anaemia [Not Recovered/Not Resolved]
  - Blood lactate dehydrogenase increased [Unknown]
  - Neutrophil count increased [Unknown]
  - Pneumonia [Recovered/Resolved]
  - Thrombocytopenia [Not Recovered/Not Resolved]
  - General physical health deterioration [Unknown]
  - White blood cell count increased [Unknown]
  - Polycythaemia vera [Unknown]
  - Haematocrit decreased [Unknown]
  - Peripheral swelling [Unknown]
  - Splenomegaly [Unknown]
  - C-reactive protein increased [Unknown]
  - Decreased appetite [Unknown]

NARRATIVE: CASE EVENT DATE: 20160801
